FAERS Safety Report 8085618-X (Version None)
Quarter: 2012Q1

REPORT INFORMATION
  Report Type: 
  Country: None (occurrence: None)
  Receive Date: 20120128
  Receipt Date: 20110420
  Transmission Date: 20120608
  Serious: Yes (Other)
  Sender: FDA-Public Use
  Company Number: US-ABBOTT-11P-163-0715423-00

PATIENT
  Sex: Female
  Weight: 86.26 kg

DRUGS (6)
  1. LISINOPRIL [Concomitant]
     Indication: HYPERTENSION
  2. FEMARA [Concomitant]
     Indication: PROPHYLAXIS
  3. PROTONIX [Concomitant]
     Indication: DYSPEPSIA
  4. FEMARA [Concomitant]
     Indication: BREAST CANCER
  5. HUMIRA [Suspect]
     Indication: RHEUMATOID ARTHRITIS
     Dates: start: 20071201, end: 20090601
  6. EFFEXOR XR [Concomitant]
     Indication: HOT FLUSH

REACTIONS (1)
  - BREAST CANCER [None]
